FAERS Safety Report 6083620-0 (Version None)
Quarter: 2009Q1

REPORT INFORMATION
  Report Type: 
  Country: None (occurrence: None)
  Receive Date: 20090219
  Receipt Date: 20090213
  Transmission Date: 20090719
  Serious: Yes (Other)
  Sender: FDA-Public Use
  Company Number: JP-BRISTOL-MYERS SQUIBB COMPANY-14509863

PATIENT
  Age: 54 Year
  Sex: Female

DRUGS (3)
  1. BRIPLATIN [Suspect]
     Indication: SQUAMOUS CELL CARCINOMA
     Route: 041
  2. FLUOROURACIL [Suspect]
     Indication: SQUAMOUS CELL CARCINOMA
     Route: 042
  3. RADIOTHERAPY [Suspect]
     Indication: SQUAMOUS CELL CARCINOMA

REACTIONS (3)
  - BONE MARROW FAILURE [None]
  - DUODENAL PERFORATION [None]
  - OEDEMA PERIPHERAL [None]
